FAERS Safety Report 8592511-2 (Version None)
Quarter: 2012Q3

REPORT INFORMATION
  Report Type: 
  Country: None (occurrence: None)
  Receive Date: 20120814
  Receipt Date: 20120810
  Transmission Date: 20120928
  Serious: Yes (Other)
  Sender: FDA-Public Use
  Company Number: PHHO2012AU011673

PATIENT

DRUGS (2)
  1. AFINITOR [Suspect]
     Indication: RENAL CELL CARCINOMA
  2. SUTENT [Suspect]
     Indication: RENAL CELL CARCINOMA

REACTIONS (1)
  - PULMONARY HYPERTENSION [None]
